FAERS Safety Report 13734178 (Version 1)
Quarter: 2017Q3

REPORT INFORMATION
  Report Type: Spontaneous
  Country: US (occurrence: US)
  Receive Date: 20170708
  Receipt Date: 20170708
  Transmission Date: 20171127
  Serious: Yes (Hospitalization, Other)
  Sender: FDA-Public Use
  Company Number: US-TORRENT-00003148

PATIENT
  Age: 48 Year
  Sex: Male

DRUGS (5)
  1. BUPROPION. [Suspect]
     Active Substance: BUPROPION
  2. ZIPRASIDONE. [Suspect]
     Active Substance: ZIPRASIDONE
  3. QUETIAPINE. [Suspect]
     Active Substance: QUETIAPINE
  4. CITALOPRAM [Suspect]
     Active Substance: CITALOPRAM HYDROBROMIDE
  5. TRAZODONE [Suspect]
     Active Substance: TRAZODONE HYDROCHLORIDE

REACTIONS (9)
  - Anxiety [Unknown]
  - Drug ineffective [Unknown]
  - Suicidal ideation [None]
  - Weight increased [Unknown]
  - Delusion [Unknown]
  - Psychotic disorder [Unknown]
  - Depression [Unknown]
  - Somnolence [Unknown]
  - Erectile dysfunction [Unknown]
